FAERS Safety Report 12426601 (Version 4)
Quarter: 2016Q4

REPORT INFORMATION
  Report Type: Report from Study
  Country: BR (occurrence: BR)
  Receive Date: 20160601
  Receipt Date: 20161009
  Transmission Date: 20170207
  Serious: Yes (Other)
  Sender: FDA-Public Use
  Company Number: PHHY2016BR074405

PATIENT
  Sex: Female
  Weight: 52 kg

DRUGS (2)
  1. EXJADE [Suspect]
     Active Substance: DEFERASIROX
     Dosage: 20 MG/KG, QD (2 DF OF 500 MG) (STARTED FROM MIDDLE TO THE END OF JULY)
     Route: 048
     Dates: start: 201607
  2. EXJADE [Suspect]
     Active Substance: DEFERASIROX
     Indication: ANAEMIA
     Dosage: 20 MG/KG, QD (2 DF OF 500 MG)
     Route: 048
     Dates: start: 20160511, end: 20160628

REACTIONS (10)
  - Weight increased [Unknown]
  - Weight decreased [Recovering/Resolving]
  - Swelling [Unknown]
  - Rheumatoid arthritis [Unknown]
  - Oropharyngeal pain [Unknown]
  - Dysphagia [Recovering/Resolving]
  - Lip injury [Not Recovered/Not Resolved]
  - Eating disorder [Recovering/Resolving]
  - Myalgia [Unknown]
  - Oropharyngeal plaque [Recovered/Resolved]
